FAERS Safety Report 12719729 (Version 1)
Quarter: 2016Q3

REPORT INFORMATION
  Report Type: Spontaneous
  Country: US (occurrence: US)
  Receive Date: 20160907
  Receipt Date: 20160907
  Transmission Date: 20161109
  Serious: Yes (Other)
  Sender: FDA-Public Use
  Company Number: US-JNJFOC-20160615395

PATIENT
  Sex: Female
  Weight: 108.41 kg

DRUGS (2)
  1. MOBIC [Concomitant]
     Active Substance: MELOXICAM
     Route: 065
  2. SIMPONI [Suspect]
     Active Substance: GOLIMUMAB
     Indication: RHEUMATOID ARTHRITIS
     Route: 058
     Dates: start: 2014

REACTIONS (4)
  - Weight increased [Unknown]
  - Rheumatoid arthritis [Unknown]
  - Drug ineffective [Unknown]
  - Body height decreased [Unknown]

NARRATIVE: CASE EVENT DATE: 2016
